FAERS Safety Report 18222349 (Version 2)
Quarter: 2020Q4

REPORT INFORMATION
  Report Type: Spontaneous
  Country: FR (occurrence: FR)
  Receive Date: 20200902
  Receipt Date: 20201006
  Transmission Date: 20210113
  Serious: Yes (Hospitalization, Other)
  Sender: FDA-Public Use
  Company Number: FR-SUN PHARMACEUTICAL INDUSTRIES LTD-2020RR-259381

PATIENT
  Age: 39 Year
  Sex: Female

DRUGS (7)
  1. CLONAZEPAM. [Suspect]
     Active Substance: CLONAZEPAM
     Dosage: DOSE REDUCED
     Route: 065
  2. CLONAZEPAM. [Suspect]
     Active Substance: CLONAZEPAM
     Indication: BIPOLAR DISORDER
     Dosage: 7 MILLIGRAM, DAILY
     Route: 065
  3. RISPERIDONE. [Suspect]
     Active Substance: RISPERIDONE
     Indication: BIPOLAR DISORDER
     Dosage: 2 MILLIGRAM, DAILY
     Route: 065
  4. HALOPERIDOL. [Suspect]
     Active Substance: HALOPERIDOL
     Indication: BIPOLAR DISORDER
     Dosage: 5 MILLIGRAM, DAILY
     Route: 065
  5. LEVOMEPROMAZINE [Suspect]
     Active Substance: LEVOMEPROMAZINE
     Indication: BIPOLAR DISORDER
     Dosage: 400 MILLIGRAM, DAILY
     Route: 065
  6. LEVOMEPROMAZINE [Suspect]
     Active Substance: LEVOMEPROMAZINE
     Dosage: DOSE REDUCED
     Route: 065
  7. LITHIUM. [Suspect]
     Active Substance: LITHIUM
     Indication: BIPOLAR DISORDER
     Dosage: INCREASED UP TO THE DOSAGE OF 800 MG PER DAY
     Route: 065

REACTIONS (5)
  - Electrocardiogram QT prolonged [Recovering/Resolving]
  - Electrocardiogram abnormal [Recovering/Resolving]
  - Drug ineffective [Unknown]
  - Hypothermia [Recovered/Resolved]
  - Altered state of consciousness [Recovering/Resolving]
